FAERS Safety Report 12247869 (Version 2)
Quarter: 2016Q2

REPORT INFORMATION
  Report Type: Spontaneous
  Country: US (occurrence: US)
  Receive Date: 20160408
  Receipt Date: 20160413
  Transmission Date: 20160815
  Serious: No
  Sender: FDA-Public Use
  Company Number: US-HORIZON-PEN-0164-2016

PATIENT
  Sex: Male

DRUGS (1)
  1. PENNSAID [Suspect]
     Active Substance: DICLOFENAC SODIUM
     Indication: MUSCULOSKELETAL PAIN
     Dosage: 1 FOIL SAMPLE PACK
     Dates: start: 20160329, end: 20160329

REACTIONS (3)
  - Application site pruritus [Recovered/Resolved]
  - Off label use [Unknown]
  - Application site erythema [Recovered/Resolved]
